FAERS Safety Report 5446655-4 (Version None)
Quarter: 2007Q3

REPORT INFORMATION
  Report Type: 
  Country: None (occurrence: None)
  Receive Date: 20070907
  Receipt Date: 20070824
  Transmission Date: 20080115
  Serious: Yes (Other)
  Sender: FDA-Public Use
  Company Number: GB-SHR-GB-2007-029152

PATIENT
  Age: 56 Year
  Sex: Female

DRUGS (1)
  1. BETAFERON [Suspect]
     Dosage: 2 MIU, UNK
     Route: 058
     Dates: start: 19950502

REACTIONS (11)
  - ANAEMIA [None]
  - HERPES ZOSTER OPHTHALMIC [None]
  - INJECTION SITE MASS [None]
  - INJECTION SITE PAIN [None]
  - LYMPHOCYTE COUNT DECREASED [None]
  - MACROCYTOSIS [None]
  - MEAN CELL VOLUME INCREASED [None]
  - NEUTROPHIL COUNT DECREASED [None]
  - PORPHYRIA NON-ACUTE [None]
  - POST PROCEDURAL COMPLICATION [None]
  - WHITE BLOOD CELL COUNT DECREASED [None]
